FAERS Safety Report 4365322-1 (Version None)
Quarter: 2004Q2

REPORT INFORMATION
  Report Type: 
  Country: None (occurrence: None)
  Receive Date: 20040520
  Receipt Date: 20040512
  Transmission Date: 20050107
  Serious: Yes (Other)
  Sender: FDA-Public Use
  Company Number: 2004017440

PATIENT
  Age: 53 Year
  Sex: Female
  Weight: 73.9363 kg

DRUGS (4)
  1. LIPITOR [Suspect]
     Indication: BLOOD CHOLESTEROL INCREASED
     Dosage: 20 MG (1 IN 1 D), ORAL
     Route: 048
     Dates: start: 20031117, end: 20040310
  2. TRIOBE (FOLIC ACID, PYRIDOXINE, CYANOCOBALAMIN) [Concomitant]
  3. VITAMINS (VITAMINS) [Concomitant]
  4. ESTROVEN (SOY ISOFLAVONES, VITAMINS NOS, MNERALS NOS, HERBAL NOS) [Concomitant]

REACTIONS (6)
  - ALOPECIA [None]
  - BURNING SENSATION [None]
  - CHOLECYSTITIS INFECTIVE [None]
  - MIDDLE INSOMNIA [None]
  - PAIN [None]
  - PARAESTHESIA [None]
